FAERS Safety Report 23795973 (Version 1)
Quarter: 2024Q2

REPORT INFORMATION
  Report Type: Report from Study
  Country: IT (occurrence: None)
  Receive Date: 20240429
  Receipt Date: 20240429
  Transmission Date: 20240716
  Serious: Yes (Other)
  Sender: FDA-Public Use
  Company Number: 2024A094536

PATIENT
  Age: 75 Year
  Sex: Female

DRUGS (1)
  1. EVUSHELD [Suspect]
     Active Substance: CILGAVIMAB\TIXAGEVIMAB
     Indication: COVID-19 prophylaxis
     Dosage: 300/300 MG
     Route: 030

REACTIONS (4)
  - Acquired gene mutation [Unknown]
  - Drug resistance [Unknown]
  - COVID-19 [Unknown]
  - Drug ineffective [Unknown]
